FAERS Safety Report 5866438-0 (Version None)
Quarter: 2008Q3

REPORT INFORMATION
  Report Type: 
  Country: None (occurrence: None)
  Receive Date: 20080827
  Receipt Date: 20080320
  Transmission Date: 20090109
  Serious: Yes (Hospitalization)
  Sender: FDA-Public Use
  Company Number: GXBR208US00760

PATIENT
  Age: 64 Year
  Sex: Female
  Weight: 128.3 kg

DRUGS (2)
  1. ARISTOSPAN [Suspect]
     Indication: RHEUMATOID ARTHRITIS
     Dosage: ONCE/SINGLE, INTRA-ARTICULAR
     Route: 014
     Dates: start: 19980321, end: 19980321
  2. PLAQUENIL [Concomitant]

REACTIONS (15)
  - ARTHRALGIA [None]
  - ARTHRITIS INFECTIVE [None]
  - CATHETERISATION VENOUS [None]
  - CONDITION AGGRAVATED [None]
  - DEHYDRATION [None]
  - ERYTHEMA [None]
  - ESCHERICHIA INFECTION [None]
  - HYPERSENSITIVITY [None]
  - KLEBSIELLA INFECTION [None]
  - OEDEMA PERIPHERAL [None]
  - PROTEUS INFECTION [None]
  - PRURITUS [None]
  - SKIN INFECTION [None]
  - STAPHYLOCOCCAL BACTERAEMIA [None]
  - URINARY TRACT INFECTION [None]
